FAERS Safety Report 10401792 (Version 1)
Quarter: 2014Q3

REPORT INFORMATION
  Report Type: Spontaneous
  Country: US (occurrence: None)
  Receive Date: 20140820
  Receipt Date: 20140820
  Transmission Date: 20150326
  Serious: No
  Sender: FDA-Public Use
  Company Number: None

PATIENT
  Age: 67 Year
  Sex: Male
  Weight: 118.2 kg

DRUGS (4)
  1. ALPRAZOLAM. [Concomitant]
     Active Substance: ALPRAZOLAM
  2. OLANZAPINE. [Concomitant]
     Active Substance: OLANZAPINE
  3. AMITIZA [Concomitant]
     Active Substance: LUBIPROSTONE
  4. BRINTELLIX [Suspect]
     Active Substance: VORTIOXETINE HYDROBROMIDE
     Indication: MAJOR DEPRESSION
     Route: 048
     Dates: start: 20140812, end: 20140817

REACTIONS (4)
  - Tremor [None]
  - Dysaesthesia [None]
  - Dizziness [None]
  - Coordination abnormal [None]

NARRATIVE: CASE EVENT DATE: 20140816
